FAERS Safety Report 9922102 (Version 1)
Quarter: 2014Q1

REPORT INFORMATION
  Report Type: Spontaneous
  Country: US (occurrence: US)
  Receive Date: 20140225
  Receipt Date: 20140225
  Transmission Date: 20141002
  Serious: Yes (Other)
  Sender: FDA-Public Use
  Company Number: US-BAYER-2014-025899

PATIENT
  Sex: Female

DRUGS (1)
  1. ALKA-SELTZER PLUS-D MULTI-SYMPTOM SINUS AND COLD [Suspect]
     Indication: NASOPHARYNGITIS
     Dosage: UNK
     Route: 048
     Dates: end: 20140217

REACTIONS (1)
  - Asthenia [None]
